FAERS Safety Report 25045379 (Version 2)
Quarter: 2025Q1

REPORT INFORMATION
  Report Type: Spontaneous
  Country: BR (occurrence: BR)
  Receive Date: 20250306
  Receipt Date: 20250331
  Transmission Date: 20250409
  Serious: Yes (Death, Hospitalization, Disabling, Other)
  Sender: SANOFI AVENTIS
  Company Number: BR-SA-2025SA063283

PATIENT
  Sex: Female

DRUGS (1)
  1. FABRAZYME [Suspect]
     Active Substance: AGALSIDASE BETA

REACTIONS (15)
  - Death [Fatal]
  - Cerebrovascular accident [Unknown]
  - Vasculitis [Unknown]
  - Gangrene [Unknown]
  - Limb discomfort [Unknown]
  - Pain in extremity [Unknown]
  - Wheelchair user [Unknown]
  - Sitting disability [Unknown]
  - Loss of personal independence in daily activities [Unknown]
  - Bedridden [Unknown]
  - Hypokinesia [Unknown]
  - Gait disturbance [Unknown]
  - Visual impairment [Unknown]
  - Tongue discomfort [Unknown]
  - Fall [Unknown]

NARRATIVE: CASE EVENT DATE: 20240901
